FAERS Safety Report 6443061-0 (Version None)
Quarter: 2009Q4

REPORT INFORMATION
  Report Type: 
  Country: None (occurrence: None)
  Receive Date: 20091117
  Receipt Date: 20091106
  Transmission Date: 20100525
  Serious: Yes (Hospitalization, Other)
  Sender: FDA-Public Use
  Company Number: US-JNJFOC-20091004192

PATIENT
  Sex: Male
  Weight: 149.69 kg

DRUGS (5)
  1. REMICADE [Suspect]
     Route: 042
     Dates: end: 20091012
  2. REMICADE [Suspect]
     Route: 042
     Dates: end: 20091012
  3. REMICADE [Suspect]
     Indication: RHEUMATOID ARTHRITIS
     Route: 042
     Dates: end: 20091012
  4. ULORIC [Suspect]
     Indication: GOUT
  5. FLU [Concomitant]
     Indication: INFLUENZA

REACTIONS (4)
  - BLOOD PRESSURE DECREASED [None]
  - DYSPNOEA [None]
  - INFUSION RELATED REACTION [None]
  - UNRESPONSIVE TO STIMULI [None]
